FAERS Safety Report 23196234 (Version 1)
Quarter: 2023Q4

REPORT INFORMATION
  Report Type: Spontaneous
  Country: KZ (occurrence: KZ)
  Receive Date: 20231117
  Receipt Date: 20231117
  Transmission Date: 20240110
  Serious: Yes (Death, Hospitalization, Other)
  Sender: FDA-Public Use
  Company Number: KZ-SA-2023SA355955

PATIENT
  Age: 28 Year
  Sex: Female

DRUGS (18)
  1. ENOXAPARIN SODIUM [Suspect]
     Active Substance: ENOXAPARIN SODIUM
     Indication: Anticoagulant therapy
     Dosage: 40 MG
     Route: 058
     Dates: start: 2020
  2. CEFTRIAXONE [Suspect]
     Active Substance: CEFTRIAXONE\CEFTRIAXONE SODIUM
     Indication: COVID-19
     Dosage: 1.0 G, BID
     Route: 030
     Dates: start: 2020
  3. MOXIFLOXACIN HYDROCHLORIDE [Suspect]
     Active Substance: MOXIFLOXACIN HYDROCHLORIDE\MOXIFLOXACIN HYDROCHLORIDE MONOHYDRATE
     Indication: COVID-19
     Dosage: 400 MG, BID
     Route: 042
     Dates: start: 2020
  4. FLUCONAZOLE [Suspect]
     Active Substance: FLUCONAZOLE
     Indication: COVID-19
     Dosage: 100 ML (2 MG/ML INTRAVENOUSLY ONCE)
     Route: 042
     Dates: start: 2020
  5. DEXAMETHASONE [Suspect]
     Active Substance: DEXAMETHASONE
     Indication: COVID-19
     Dosage: 8 MG, BID
     Route: 042
     Dates: start: 2020
  6. ASPIRIN [Suspect]
     Active Substance: ASPIRIN
     Indication: COVID-19
     Dosage: 100 MG, QD
     Route: 048
     Dates: start: 2020
  7. LOPINAVIR [Suspect]
     Active Substance: LOPINAVIR
     Indication: COVID-19
     Dosage: 200 MG, BID
     Route: 048
     Dates: start: 2020
  8. RITONAVIR [Suspect]
     Active Substance: RITONAVIR
     Indication: COVID-19
     Dosage: 50 MG, BID
     Route: 048
     Dates: start: 2020
  9. ERTAPENEM [Suspect]
     Active Substance: ERTAPENEM
     Indication: COVID-19
     Dosage: 1.0 G, QD
     Route: 042
     Dates: start: 2020
  10. SODIUM CHLORIDE [Concomitant]
     Active Substance: SODIUM CHLORIDE
     Indication: COVID-19
     Dosage: 200 MG, 1X
     Dates: start: 2020
  11. ALBUMIN HUMAN [Concomitant]
     Active Substance: ALBUMIN HUMAN
     Indication: COVID-19
     Dosage: 100 ML(20%)
     Route: 042
     Dates: start: 2020
  12. KETAMINE [Concomitant]
     Active Substance: KETAMINE
     Indication: COVID-19
     Dosage: UNK UNK, QD
     Route: 030
     Dates: start: 2020
  13. KETOPROFEN [Concomitant]
     Active Substance: KETOPROFEN
     Indication: COVID-19
     Dosage: 100 MG, BID
     Route: 030
     Dates: start: 2020
  14. ARDUAN [Concomitant]
     Active Substance: PIPECURONIUM BROMIDE
     Indication: COVID-19
     Dosage: UNK UNK, 1X
     Dates: start: 2020
  15. ATRACURIUM BESYLATE [Concomitant]
     Active Substance: ATRACURIUM BESYLATE
     Indication: COVID-19
     Dosage: 25 MG, QD
     Route: 042
     Dates: start: 2020
  16. OXYTOCIN [Concomitant]
     Active Substance: OXYTOCIN
     Indication: COVID-19
     Dosage: 5 IU, QD
     Route: 030
     Dates: start: 2020
  17. METOCLOPRAMIDE [Concomitant]
     Active Substance: METOCLOPRAMIDE
     Indication: COVID-19
     Dosage: 5 MG, QD
     Route: 042
     Dates: start: 2020
  18. PROPOFOL [Concomitant]
     Active Substance: PROPOFOL
     Indication: Sedation
     Dosage: 500 MG, BID
     Dates: start: 2020

REACTIONS (5)
  - Haemorrhage [Fatal]
  - Renal vascular thrombosis [Fatal]
  - Pulmonary thrombosis [Fatal]
  - Hepatic vascular thrombosis [Fatal]
  - Exposure during pregnancy [Unknown]

NARRATIVE: CASE EVENT DATE: 20200101
